FAERS Safety Report 16362262 (Version 1)
Quarter: 2019Q3

REPORT INFORMATION
  Report Type: Spontaneous
  Country: US (occurrence: US)
  Receive Date: 20190526
  Receipt Date: 20190526
  Transmission Date: 20191004
  Serious: No
  Sender: FDA-Public Use
  Company Number: None

PATIENT
  Age: 51 Year
  Sex: Male
  Weight: 64.9 kg

DRUGS (1)
  1. YESCARTA [Suspect]
     Active Substance: AXICABTAGENE CILOLEUCEL
     Route: 041
     Dates: start: 20190429, end: 20190429

REACTIONS (3)
  - Neurotoxicity [None]
  - Hypoxia [None]
  - Pyrexia [None]

NARRATIVE: CASE EVENT DATE: 20190503
